FAERS Safety Report 4511618-X (Version None)
Quarter: 2004Q4

REPORT INFORMATION
  Report Type: 
  Country: None (occurrence: None)
  Receive Date: 20041129
  Receipt Date: 20041018
  Transmission Date: 20050328
  Serious: No
  Sender: FDA-Public Use
  Company Number: US-BRISTOL-MYERS SQUIBB COMPANY-12734745

PATIENT
  Age: 7 Year
  Sex: Male
  Weight: 18 kg

DRUGS (1)
  1. ABILIFY [Suspect]
     Route: 048

REACTIONS (5)
  - LETHARGY [None]
  - MUSCLE RIGIDITY [None]
  - MUSCULOSKELETAL STIFFNESS [None]
  - SOMNOLENCE [None]
  - TREMOR [None]
